FAERS Safety Report 19084185 (Version 1)
Quarter: 2021Q2

REPORT INFORMATION
  Report Type: Spontaneous
  Country: FR (occurrence: FR)
  Receive Date: 20210401
  Receipt Date: 20210401
  Transmission Date: 20210717
  Serious: Yes (Life-Threatening, Hospitalization)
  Sender: FDA-Public Use
  Company Number: FR-TEVA-2021-FR-1896040

PATIENT
  Age: 57 Year
  Sex: Male
  Weight: 75 kg

DRUGS (14)
  1. LOVENOX [Concomitant]
     Active Substance: ENOXAPARIN SODIUM
  2. ACTISKENAN [Concomitant]
     Active Substance: MORPHINE SULFATE
  3. ONDANSETRON [Concomitant]
     Active Substance: ONDANSETRON
  4. GABAPENTINE [Suspect]
     Active Substance: GABAPENTIN
     Indication: NEURALGIA
     Dosage: 500MILLIGRAM
     Route: 048
     Dates: start: 20201231, end: 20210121
  5. MOVICOL [Concomitant]
     Active Substance: POLYETHYLENE GLYCOL 3350\POTASSIUM CHLORIDE\SODIUM BICARBONATE\SODIUM CHLORIDE
  6. SOLUPRED 20 MG, COMPRIME ORODISPERSIBLE [Concomitant]
     Active Substance: PREDNISOLONE SODIUM METAZOATE
  7. ATORVASTATINE [Concomitant]
     Active Substance: ATORVASTATIN
  8. PARACETAMOL [Concomitant]
     Active Substance: ACETAMINOPHEN
  9. ATENOLOL. [Concomitant]
     Active Substance: ATENOLOL
  10. PANTOPRAZOLE [Concomitant]
     Active Substance: PANTOPRAZOLE
  11. YONDELIS [Suspect]
     Active Substance: TRABECTEDIN
     Indication: MYXOID LIPOSARCOMA
     Dosage: 2.8MILLIGRAM
     Route: 042
     Dates: start: 20210119, end: 20210120
  12. SKENAN L.P. 30 MG, MICROGRANULES ALIBERATION PROLONGEE EN GELULE [Concomitant]
     Dosage: MICROGRANULES IN
  13. ABSTRAL [Concomitant]
     Active Substance: FENTANYL CITRATE
  14. KARDEGIC [Concomitant]
     Active Substance: ASPIRIN DL-LYSINE

REACTIONS (3)
  - Hepatic cytolysis [Recovered/Resolved]
  - Pancytopenia [Recovered/Resolved]
  - Sepsis [Recovered/Resolved]

NARRATIVE: CASE EVENT DATE: 20210120
